FAERS Safety Report 24315789 (Version 6)
Quarter: 2024Q4

REPORT INFORMATION
  Report Type: Report from Study
  Country: US (occurrence: US)
  Receive Date: 20240913
  Receipt Date: 20241226
  Transmission Date: 20250114
  Serious: Yes (Other)
  Sender: DECIPHERA PHARMACEUTICALS
  Company Number: US-DECIPHERA PHARMACEUTICALS LLC-2024US000778

PATIENT
  Age: 82 Year
  Sex: Female
  Weight: 42.8 kg

DRUGS (3)
  1. QINLOCK [Suspect]
     Active Substance: RIPRETINIB
     Indication: Gastrointestinal stromal tumour
     Dosage: 150 MILLIGRAM, QD
     Route: 048
     Dates: start: 20240829, end: 20241001
  2. QINLOCK [Suspect]
     Active Substance: RIPRETINIB
     Indication: Malignant connective tissue neoplasm
     Dosage: 150 MILLIGRAM, QD
     Route: 048
     Dates: start: 202410, end: 2024
  3. QINLOCK [Suspect]
     Active Substance: RIPRETINIB
     Dosage: 150 MILLIGRAM, QD
     Route: 048
     Dates: start: 2024, end: 2024

REACTIONS (17)
  - Stoma obstruction [Unknown]
  - Tumour pain [Unknown]
  - Loss of personal independence in daily activities [Not Recovered/Not Resolved]
  - Paraesthesia [Unknown]
  - Product use complaint [Unknown]
  - Dysphonia [Unknown]
  - Blood pressure decreased [Unknown]
  - Heart rate increased [Unknown]
  - Pain [Not Recovered/Not Resolved]
  - Depressed mood [Unknown]
  - Rash pruritic [Not Recovered/Not Resolved]
  - Anxiety [Unknown]
  - Myalgia [Not Recovered/Not Resolved]
  - Dry skin [Unknown]
  - Vomiting [Unknown]
  - Product physical consistency issue [Unknown]
  - Product size issue [Not Recovered/Not Resolved]

NARRATIVE: CASE EVENT DATE: 20240101
